FAERS Safety Report 5206097-3 (Version None)
Quarter: 2007Q1

REPORT INFORMATION
  Report Type: 
  Country: None (occurrence: None)
  Receive Date: 20070108
  Receipt Date: 20061228
  Transmission Date: 20070707
  Serious: Yes (Congenital Anomaly, Other)
  Sender: FDA-Public Use
  Company Number: 07H-163-0311624-00

PATIENT

DRUGS (1)
  1. MAGNESIUM SULFATE [Suspect]
     Dosage: INTRAPLACENTAL

REACTIONS (7)
  - BLOOD ALKALINE PHOSPHATASE INCREASED [None]
  - DRUG EXPOSURE DURING PREGNANCY [None]
  - DRUG EXPOSURE VIA BREAST MILK [None]
  - HYPERMAGNESAEMIA [None]
  - HYPOCALCAEMIA [None]
  - OSTEOPENIA [None]
  - RIB FRACTURE [None]
